FAERS Safety Report 9353530 (Version 2)
Quarter: 2013Q3

REPORT INFORMATION
  Report Type: Spontaneous
  Country: FR (occurrence: FR)
  Receive Date: 20130618
  Receipt Date: 20130712
  Transmission Date: 20140515
  Serious: Yes (Hospitalization, Other)
  Sender: FDA-Public Use
  Company Number: FR-JNJFOC-20130604073

PATIENT
  Age: 62 Year
  Sex: Male
  Weight: 65 kg

DRUGS (3)
  1. XEPLION [Suspect]
     Indication: PSYCHOTIC DISORDER
     Route: 030
     Dates: start: 20130429
  2. LEPTICUR [Concomitant]
     Indication: PRODUCT USED FOR UNKNOWN INDICATION
     Route: 048
     Dates: start: 201303
  3. RISPERDAL CONSTA [Concomitant]
     Indication: PSYCHOTIC DISORDER
     Route: 030
     Dates: start: 201303, end: 201305

REACTIONS (4)
  - Infection [Recovered/Resolved]
  - Leukocytosis [Recovered/Resolved]
  - Pyrexia [Unknown]
  - Diverticulitis [Recovered/Resolved]
